FAERS Safety Report 16446733 (Version 8)
Quarter: 2019Q4

REPORT INFORMATION
  Report Type: Spontaneous
  Country: US (occurrence: US)
  Receive Date: 20190618
  Receipt Date: 20191210
  Transmission Date: 20200122
  Serious: Yes (Hospitalization)
  Sender: FDA-Public Use
  Company Number: US-ACTELION-A-NJ2019-191773

PATIENT
  Age: 64 Year
  Sex: Female
  Weight: 80.73 kg

DRUGS (3)
  1. VELETRI [Suspect]
     Active Substance: EPOPROSTENOL
     Indication: PULMONARY HYPERTENSION
     Dosage: 30 NG/KG, PER MIN
     Route: 042
  2. VELETRI [Suspect]
     Active Substance: EPOPROSTENOL
     Dosage: 20 NG/KG, PER MIN
     Route: 042
  3. OPSUMIT [Suspect]
     Active Substance: MACITENTAN
     Indication: PULMONARY HYPERTENSION
     Dosage: 10 MG, QD
     Route: 048
     Dates: start: 20190802

REACTIONS (21)
  - Clostridium difficile infection [Unknown]
  - Diarrhoea [Unknown]
  - Syncope [Unknown]
  - Colitis [Unknown]
  - Dysphonia [Unknown]
  - Diverticulitis [Unknown]
  - Abdominal pain lower [Unknown]
  - Hypotension [Unknown]
  - Device use issue [Unknown]
  - Gastrointestinal infection [Unknown]
  - Hypovolaemic shock [Recovered/Resolved]
  - Device breakage [Recovered/Resolved]
  - Malaise [Unknown]
  - Catheter management [Unknown]
  - Sepsis [Unknown]
  - Loss of consciousness [Unknown]
  - Organ failure [Unknown]
  - Laryngitis [Unknown]
  - Dizziness [Unknown]
  - Headache [Unknown]
  - Unevaluable event [Unknown]

NARRATIVE: CASE EVENT DATE: 20190608
